FAERS Safety Report 25750936 (Version 1)
Quarter: 2025Q3

REPORT INFORMATION
  Report Type: Spontaneous
  Country: US (occurrence: US)
  Receive Date: 20250902
  Receipt Date: 20250902
  Transmission Date: 20251020
  Serious: Yes (Other)
  Sender: PFIZER
  Company Number: US-PFIZER INC-PV202500098703

PATIENT
  Age: 47 Year
  Sex: Male

DRUGS (5)
  1. METHYLPREDNISOLONE SODIUM SUCCINATE [Suspect]
     Active Substance: METHYLPREDNISOLONE SODIUM SUCCINATE
     Indication: Neutropenia
     Dosage: 50-10 MG/DAY, 2X/WEEK
     Route: 042
  2. PANCURONIUM BROMIDE [Suspect]
     Active Substance: PANCURONIUM BROMIDE
     Indication: Mechanical ventilation
     Route: 042
  3. GENTAMICIN SULFATE [Suspect]
     Active Substance: GENTAMICIN SULFATE
     Indication: Pneumonia
     Dosage: 290 MG, DAILY
  4. VECURONIUM BROMIDE [Suspect]
     Active Substance: VECURONIUM BROMIDE
     Indication: Mechanical ventilation
     Route: 042
  5. METRONIDAZOLE [Concomitant]
     Active Substance: METRONIDAZOLE
     Indication: Pneumonia
     Dosage: 1.75 G, DAILY

REACTIONS (8)
  - Quadriplegia [Unknown]
  - Hepatic failure [Unknown]
  - Facial paresis [Unknown]
  - Extraocular muscle disorder [Unknown]
  - Respiratory acidosis [Unknown]
  - Metabolic acidosis [Unknown]
  - Hypermagnesaemia [Unknown]
  - Off label use [Unknown]
